FAERS Safety Report 9506756 (Version 1)
Quarter: 2013Q3

REPORT INFORMATION
  Report Type: Spontaneous
  Country: US (occurrence: None)
  Receive Date: 20130905
  Receipt Date: 20130905
  Transmission Date: 20140515
  Serious: Yes (Other)
  Sender: FDA-Public Use
  Company Number: None

PATIENT
  Age: 15 Year
  Sex: Female
  Weight: 67.3 kg

DRUGS (6)
  1. PURITY FIRST VITAMIN B50 [Suspect]
     Indication: ANXIETY
     Dosage: VITAMIN B50 TID ORAL
     Route: 048
     Dates: start: 201208, end: 201212
  2. PURITY FIRST VITAMIN B50 [Suspect]
     Indication: OBSESSIVE-COMPULSIVE DISORDER
     Dosage: VITAMIN B50 TID ORAL
     Route: 048
     Dates: start: 201208, end: 201212
  3. PURITY FIRST VITAMIN B50 [Suspect]
     Indication: OBSESSIVE-COMPULSIVE DISORDER
     Dosage: MULTIMINERAL TID ORAL
     Route: 048
     Dates: start: 201208, end: 201207
  4. PURITY FIRST VITAMIN B50 [Suspect]
     Indication: ANXIETY
     Dosage: MULTIMINERAL TID ORAL
     Route: 048
     Dates: start: 201208, end: 201207
  5. ZOLOFT [Concomitant]
  6. L-GLUTAMINE 3000MG [Concomitant]

REACTIONS (6)
  - Amenorrhoea [None]
  - Insomnia [None]
  - Hirsutism [None]
  - Dysphonia [None]
  - Alopecia [None]
  - Enlarged clitoris [None]
